FAERS Safety Report 4919430-4 (Version None)
Quarter: 2006Q1

REPORT INFORMATION
  Report Type: 
  Country: None (occurrence: None)
  Receive Date: 20060222
  Receipt Date: 20051012
  Transmission Date: 20060701
  Serious: Yes (Hospitalization)
  Sender: FDA-Public Use
  Company Number: US-MERCK-0510USA06930

PATIENT
  Age: 52 Year
  Sex: Female
  Weight: 116 kg

DRUGS (5)
  1. VIOXX [Suspect]
     Indication: OSTEOARTHRITIS
     Route: 048
     Dates: start: 20020701, end: 20031105
  2. VIOXX [Suspect]
     Indication: RHEUMATOID ARTHRITIS
     Route: 048
     Dates: start: 20020701, end: 20031105
  3. NAPROXEN [Concomitant]
     Route: 065
     Dates: start: 20020101
  4. LORATADINE [Concomitant]
     Route: 065
  5. CIMETIDINE [Concomitant]
     Route: 065

REACTIONS (2)
  - CEREBROVASCULAR ACCIDENT [None]
  - CHEST PAIN [None]
